FAERS Safety Report 22525866 (Version 3)
Quarter: 2023Q2

REPORT INFORMATION
  Report Type: Spontaneous
  Country: US (occurrence: US)
  Receive Date: 20230606
  Receipt Date: 20230622
  Transmission Date: 20230722
  Serious: Yes (Hospitalization, Other)
  Sender: FDA-Public Use
  Company Number: US-UNITED THERAPEUTICS-UNT-2023-013953

PATIENT
  Age: 15 Year
  Sex: Female
  Weight: 49.07 kg

DRUGS (5)
  1. REMODULIN [Suspect]
     Active Substance: TREPROSTINIL
     Indication: Pulmonary arterial hypertension
     Dosage: 0.1208 ?G/KG, CONTINUING
     Route: 041
  2. REMODULIN [Suspect]
     Active Substance: TREPROSTINIL
     Dosage: UNK, CONTINUING
     Route: 041
     Dates: start: 20230203
  3. REMODULIN [Suspect]
     Active Substance: TREPROSTINIL
     Indication: Pulmonary arterial hypertension
     Dosage: 0.1208 ?G/KG (SELF FILL CASSETTE WITH 2.9 ML. RATE OF 34 MCL/HOUR), CONTINUING
     Route: 058
     Dates: start: 20230518
  4. TRACLEER [Concomitant]
     Active Substance: BOSENTAN
     Indication: Product used for unknown indication
     Dosage: UNK
     Route: 065
  5. TADALAFIL [Concomitant]
     Active Substance: TADALAFIL
     Indication: Product used for unknown indication
     Dosage: UNK
     Route: 065

REACTIONS (10)
  - Vascular device infection [Unknown]
  - Device failure [Unknown]
  - Device failure [Unknown]
  - Device use issue [Unknown]
  - Device failure [Recovered/Resolved]
  - Device failure [Recovered/Resolved]
  - Device failure [Recovered/Resolved]
  - Device failure [Recovered/Resolved]
  - Device failure [Recovered/Resolved]
  - Device failure [Recovered/Resolved]

NARRATIVE: CASE EVENT DATE: 20230501
